FAERS Safety Report 10772265 (Version 1)
Quarter: 2015Q1

REPORT INFORMATION
  Report Type: Spontaneous
  Country: CH (occurrence: CH)
  Receive Date: 20150206
  Receipt Date: 20150206
  Transmission Date: 20150721
  Serious: Yes (Other)
  Sender: FDA-Public Use
  Company Number: CH-SPECTRUM PHARMACEUTICALS, INC.-15-Z-CH-00049

PATIENT

DRUGS (8)
  1. ETOPOSIDE. [Suspect]
     Active Substance: ETOPOSIDE
     Indication: MANTLE CELL LYMPHOMA
     Dosage: 150 MG/M2, BID, DAY -5 TO DAY -2
     Route: 065
  2. ZEVALIN [Suspect]
     Active Substance: IBRITUMOMAB TIUXETAN
     Dosage: 185 MBQ, SINGLE, DAY -21
     Route: 042
  3. CARMUSTINE [Suspect]
     Active Substance: CARMUSTINE
     Indication: MANTLE CELL LYMPHOMA
     Dosage: 300 MG/M2, UNKNOWN, DAY -6
     Route: 065
  4. RITUXIMAB [Suspect]
     Active Substance: RITUXIMAB
     Dosage: 250 MG/M2, SINGLE, DAY -21
     Route: 042
  5. CYTARABINE. [Suspect]
     Active Substance: CYTARABINE
     Indication: MANTLE CELL LYMPHOMA
     Dosage: 200 MG/M2, BID,  DAY -5 TO -2
     Route: 042
  6. ZEVALIN [Suspect]
     Active Substance: IBRITUMOMAB TIUXETAN
     Indication: MANTLE CELL LYMPHOMA
     Dosage: 14.8 MBQ/KG, SINGLE, DAY -14
     Route: 042
  7. RITUXIMAB [Suspect]
     Active Substance: RITUXIMAB
     Indication: MANTLE CELL LYMPHOMA
     Dosage: 250 MG/M2, SINGLE, DAY -14
     Route: 042
  8. MELPHALAN [Suspect]
     Active Substance: MELPHALAN
     Indication: MANTLE CELL LYMPHOMA
     Dosage: 140 MG/M2, UNKNOWN, DAY -1
     Route: 065

REACTIONS (1)
  - Gastrointestinal haemorrhage [Unknown]
